FAERS Safety Report 24802425 (Version 1)
Quarter: 2025Q1

REPORT INFORMATION
  Report Type: Spontaneous
  Country: FR (occurrence: FR)
  Receive Date: 20250103
  Receipt Date: 20250103
  Transmission Date: 20250409
  Serious: Yes (Hospitalization, Other)
  Sender: ALEXION PHARMACEUTICALS
  Company Number: None

PATIENT
  Age: 77 Year
  Weight: 117 kg

DRUGS (32)
  1. DAPAGLIFLOZIN [Suspect]
     Active Substance: DAPAGLIFLOZIN
     Indication: Type 2 diabetes mellitus
     Dosage: 10 MILLIGRAM, QD
  2. DAPAGLIFLOZIN [Suspect]
     Active Substance: DAPAGLIFLOZIN
     Dosage: 10 MILLIGRAM, QD
     Route: 048
  3. DAPAGLIFLOZIN [Suspect]
     Active Substance: DAPAGLIFLOZIN
     Dosage: 10 MILLIGRAM, QD
  4. DAPAGLIFLOZIN [Suspect]
     Active Substance: DAPAGLIFLOZIN
     Dosage: 10 MILLIGRAM, QD
     Route: 048
  5. DAPTOMYCIN [Suspect]
     Active Substance: DAPTOMYCIN
     Indication: Arthritis infective
     Dosage: 1200 MILLIGRAM, QD
     Route: 042
  6. DAPTOMYCIN [Suspect]
     Active Substance: DAPTOMYCIN
     Dosage: 1200 MILLIGRAM, QD
  7. ATORVASTATIN CALCIUM [Suspect]
     Active Substance: ATORVASTATIN CALCIUM
     Indication: Dyslipidaemia
     Dosage: 10 MILLIGRAM, QD
     Route: 048
  8. ATORVASTATIN CALCIUM [Suspect]
     Active Substance: ATORVASTATIN CALCIUM
     Dosage: 10 MILLIGRAM, QD
  9. METFORMIN HYDROCHLORIDE [Suspect]
     Active Substance: METFORMIN HYDROCHLORIDE
     Indication: Type 2 diabetes mellitus
     Dosage: 1000 MILLIGRAM, QD
     Route: 048
  10. METFORMIN HYDROCHLORIDE [Suspect]
     Active Substance: METFORMIN HYDROCHLORIDE
     Dosage: 1000 MILLIGRAM, QD
  11. PANTOPRAZOLE [Concomitant]
     Active Substance: PANTOPRAZOLE
     Route: 065
  12. PANTOPRAZOLE [Concomitant]
     Active Substance: PANTOPRAZOLE
     Route: 065
  13. BISOPROLOL FUMARATE [Concomitant]
     Active Substance: BISOPROLOL FUMARATE
     Route: 065
  14. BISOPROLOL FUMARATE [Concomitant]
     Active Substance: BISOPROLOL FUMARATE
     Route: 065
  15. INNOVAIR [Concomitant]
     Active Substance: BECLOMETHASONE DIPROPIONATE\FORMOTEROL
     Route: 065
  16. INNOVAIR [Concomitant]
     Active Substance: BECLOMETHASONE DIPROPIONATE\FORMOTEROL
     Route: 065
  17. SPIRIVA RESPIMAT [Concomitant]
     Active Substance: TIOTROPIUM BROMIDE
     Route: 065
  18. SPIRIVA RESPIMAT [Concomitant]
     Active Substance: TIOTROPIUM BROMIDE
     Route: 065
  19. ZOPICLONE [Concomitant]
     Active Substance: ZOPICLONE
     Route: 065
  20. ZOPICLONE [Concomitant]
     Active Substance: ZOPICLONE
     Route: 065
  21. LEVOTHYROXINE [Concomitant]
     Active Substance: LEVOTHYROXINE
     Route: 065
  22. LEVOTHYROXINE [Concomitant]
     Active Substance: LEVOTHYROXINE
     Route: 065
  23. FUROSEMIDE [Concomitant]
     Active Substance: FUROSEMIDE
     Route: 065
  24. FUROSEMIDE [Concomitant]
     Active Substance: FUROSEMIDE
     Route: 065
  25. OXYCODONE [Concomitant]
     Active Substance: OXYCODONE
     Route: 065
  26. OXYCODONE [Concomitant]
     Active Substance: OXYCODONE
     Route: 065
  27. OXYCODONE HYDROCHLORIDE [Concomitant]
     Active Substance: OXYCODONE HYDROCHLORIDE
     Route: 065
  28. OXYCODONE HYDROCHLORIDE [Concomitant]
     Active Substance: OXYCODONE HYDROCHLORIDE
     Route: 065
  29. NALOXEGOL OXALATE [Concomitant]
     Active Substance: NALOXEGOL OXALATE
     Route: 065
  30. NALOXEGOL OXALATE [Concomitant]
     Active Substance: NALOXEGOL OXALATE
     Route: 065
  31. XARELTO [Concomitant]
     Active Substance: RIVAROXABAN
     Route: 065
  32. XARELTO [Concomitant]
     Active Substance: RIVAROXABAN
     Route: 065

REACTIONS (2)
  - Rhabdomyolysis [Recovered/Resolved]
  - Renal failure [Not Recovered/Not Resolved]
